FAERS Safety Report 19784766 (Version 1)
Quarter: 2021Q3

REPORT INFORMATION
  Report Type: Report from Study
  Country: US (occurrence: US)
  Receive Date: 20210903
  Receipt Date: 20210903
  Transmission Date: 20211014
  Serious: Yes (Hospitalization, Other)
  Sender: FDA-Public Use
  Company Number: US-IPSEN BIOPHARMACEUTICALS, INC.-2021-21353

PATIENT
  Age: 51 Year
  Sex: Female

DRUGS (1)
  1. SOMATULINE DEPOT [Suspect]
     Active Substance: LANREOTIDE ACETATE
     Indication: SMALL INTESTINE CARCINOMA
     Dosage: 120 MG
     Route: 058
     Dates: start: 20210127

REACTIONS (4)
  - Gallbladder obstruction [Recovering/Resolving]
  - Neuropathy peripheral [Recovering/Resolving]
  - Osteoporosis [Recovering/Resolving]
  - Injection site urticaria [Recovered/Resolved]

NARRATIVE: CASE EVENT DATE: 2021
